FAERS Safety Report 4277511-5 (Version None)
Quarter: 2004Q1

REPORT INFORMATION
  Report Type: 
  Country: None (occurrence: None)
  Receive Date: 20040122
  Receipt Date: 20031110
  Transmission Date: 20041129
  Serious: Yes (Hospitalization, Other)
  Sender: FDA-Public Use
  Company Number: PHFR2003GB04378

PATIENT
  Age: 53 Year
  Sex: Female

DRUGS (6)
  1. CLOZARIL [Suspect]
     Indication: SCHIZOPHRENIA
     Dosage: 350 MG/DAY
     Route: 048
     Dates: start: 20000929, end: 20001128
  2. DOTHIEPIN HYDROCHLORIDE [Concomitant]
     Route: 048
  3. METFORMIN HCL [Concomitant]
     Route: 048
  4. INSULIN [Concomitant]
  5. LACTULOSE [Concomitant]
     Route: 048
  6. HYOSCINE [Concomitant]

REACTIONS (7)
  - ALANINE AMINOTRANSFERASE INCREASED [None]
  - BLOOD ALKALINE PHOSPHATASE INCREASED [None]
  - DIABETES MELLITUS [None]
  - DIABETES MELLITUS INADEQUATE CONTROL [None]
  - HYPERTHERMIA [None]
  - LIVER FUNCTION TEST ABNORMAL [None]
  - MALAISE [None]
